FAERS Safety Report 22330083 (Version 1)
Quarter: 2023Q2

REPORT INFORMATION
  Report Type: Spontaneous
  Country: US (occurrence: None)
  Receive Date: 20230517
  Receipt Date: 20230517
  Transmission Date: 20230721
  Serious: No
  Sender: FDA-Public Use
  Company Number: US-ROCHE-3212371

PATIENT
  Age: 69 Year
  Sex: Female
  Weight: 68.1 kg

DRUGS (23)
  1. ACTEMRA [Suspect]
     Active Substance: TOCILIZUMAB
     Indication: Giant cell arteritis
     Dosage: STRENGTH: 162MG
     Route: 065
     Dates: start: 20210624
  2. ACTEMRA [Suspect]
     Active Substance: TOCILIZUMAB
     Route: 065
     Dates: start: 20221214
  3. AMLODIPINE [Concomitant]
     Active Substance: AMLODIPINE BESYLATE
  4. VITAMIN C [Concomitant]
     Active Substance: ASCORBIC ACID
  5. VITAMIN B12 [Concomitant]
     Active Substance: CYANOCOBALAMIN
  6. VITAMIN D3 [Concomitant]
     Active Substance: CHOLECALCIFEROL
  7. ASPIRIN [Concomitant]
     Active Substance: ASPIRIN
  8. VALISONE [Concomitant]
     Active Substance: BETAMETHASONE VALERATE
  9. VIBRAMYCIN [Concomitant]
     Active Substance: DOXYCYCLINE
  10. NEURONTIN [Concomitant]
     Active Substance: GABAPENTIN
  11. HYDRODIURIL [Concomitant]
     Active Substance: HYDROCHLOROTHIAZIDE
  12. ATARAX [Concomitant]
     Active Substance: HYDROXYZINE HYDROCHLORIDE
  13. NIZORAL [Concomitant]
     Active Substance: KETOCONAZOLE
  14. LISINOPRIL [Concomitant]
     Active Substance: LISINOPRIL
  15. SKELAXIN [Concomitant]
     Active Substance: METAXALONE
  16. TOPROL XL [Concomitant]
     Active Substance: METOPROLOL SUCCINATE
  17. BACTROBAN [Concomitant]
     Active Substance: MUPIROCIN\MUPIROCIN CALCIUM
  18. NITROSTAT [Concomitant]
     Active Substance: NITROGLYCERIN
  19. ZANAFLEX [Concomitant]
     Active Substance: TIZANIDINE HYDROCHLORIDE
  20. OMEPRAZOLE [Concomitant]
     Active Substance: OMEPRAZOLE
  21. POTASSIUM CHLORIDE [Concomitant]
     Active Substance: POTASSIUM CHLORIDE
  22. PREDNISOLONE [Concomitant]
     Active Substance: PREDNISOLONE
  23. PHENERGAN [Concomitant]
     Active Substance: PROMETHAZINE HYDROCHLORIDE

REACTIONS (2)
  - Blood glucose fluctuation [Unknown]
  - Blood pressure abnormal [Unknown]

NARRATIVE: CASE EVENT DATE: 20221019
